FAERS Safety Report 10418196 (Version 2)
Quarter: 2014Q4

REPORT INFORMATION
  Report Type: Spontaneous
  Country: US (occurrence: US)
  Receive Date: 20140829
  Receipt Date: 20141010
  Transmission Date: 20150528
  Serious: Yes (Hospitalization)
  Sender: FDA-Public Use
  Company Number: US-NOVOPROD-420465

PATIENT
  Age: 42 Year
  Sex: Female
  Weight: 63.49 kg

DRUGS (15)
  1. LASIX [Concomitant]
     Active Substance: FUROSEMIDE
     Indication: PRODUCT USED FOR UNKNOWN INDICATION
     Dosage: 40 MG, PRN
     Dates: start: 20121126
  2. TOPAMAX [Concomitant]
     Active Substance: TOPIRAMATE
     Indication: PRODUCT USED FOR UNKNOWN INDICATION
     Dosage: 50 MG, QD
     Dates: start: 20120326
  3. LANTUS [Concomitant]
     Active Substance: INSULIN GLARGINE
     Indication: PRODUCT USED FOR UNKNOWN INDICATION
     Dosage: 3 ML INJ AS NEEDED
     Dates: start: 20121126
  4. ZOLOFT [Concomitant]
     Active Substance: SERTRALINE HYDROCHLORIDE
     Indication: PRODUCT USED FOR UNKNOWN INDICATION
     Dosage: 100 MG, QD
     Dates: start: 20130318
  5. PROVENTIL                          /00139502/ [Concomitant]
     Indication: PRODUCT USED FOR UNKNOWN INDICATION
     Dosage: 90 MCG 1 PUFF AS NEEDED
     Route: 055
     Dates: start: 20100312
  6. METHADONE [Concomitant]
     Active Substance: METHADONE HYDROCHLORIDE
     Indication: PRODUCT USED FOR UNKNOWN INDICATION
     Dosage: 5 MG, QD
     Dates: start: 20140403
  7. NUEDEXTA [Concomitant]
     Active Substance: DEXTROMETHORPHAN HYDROBROMIDE\QUINIDINE SULFATE
     Indication: PRODUCT USED FOR UNKNOWN INDICATION
     Dosage: 20/10 MG 1 CAP TWICE DAILY
     Dates: start: 20140403
  8. LEVEMIR [Concomitant]
     Active Substance: INSULIN DETEMIR
     Indication: TYPE 1 DIABETES MELLITUS
     Dosage: ONLY USES WHEN SICK WITH A COLD OR FLU
     Route: 058
  9. PROPRANOLOL [Concomitant]
     Active Substance: PROPRANOLOL\PROPRANOLOL HYDROCHLORIDE
     Indication: HEADACHE
     Dosage: 40 MG, BID
     Dates: start: 20120326
  10. LEVOTHYROXINE [Concomitant]
     Active Substance: LEVOTHYROXINE
     Indication: HYPOTHYROIDISM
     Dosage: 40 MG, QD
     Route: 048
  11. ALBUTEROL                          /00139501/ [Concomitant]
     Active Substance: ALBUTEROL
     Indication: PRODUCT USED FOR UNKNOWN INDICATION
     Dosage: 0.083% 2.5MG/3ML, USE EVERY 6 HOURS PRN
     Dates: start: 20100312
  12. PLAVIX [Concomitant]
     Active Substance: CLOPIDOGREL BISULFATE
     Indication: PRODUCT USED FOR UNKNOWN INDICATION
     Dosage: 75 MG, QD
     Dates: start: 20130913
  13. NOVOLOG [Suspect]
     Active Substance: INSULIN ASPART
     Indication: TYPE 1 DIABETES MELLITUS
     Route: 058
  14. XANAX [Concomitant]
     Active Substance: ALPRAZOLAM
     Indication: PRODUCT USED FOR UNKNOWN INDICATION
     Dosage: 0.25 MG, 4 QD
     Dates: start: 20120326
  15. LANTUS [Concomitant]
     Active Substance: INSULIN GLARGINE
     Dosage: SAMPLE LANTUS SOLOSTAR PEN 3 ML
     Dates: start: 20140102

REACTIONS (3)
  - Hypoglycaemic seizure [Recovered/Resolved]
  - Hypoglycaemic coma [Recovered/Resolved]
  - Addison^s disease [Not Recovered/Not Resolved]

NARRATIVE: CASE EVENT DATE: 20140612
